FAERS Safety Report 17077117 (Version 1)
Quarter: 2019Q4

REPORT INFORMATION
  Report Type: Spontaneous
  Country: ES (occurrence: ES)
  Receive Date: 20191126
  Receipt Date: 20191126
  Transmission Date: 20200122
  Serious: Yes (Other)
  Sender: FDA-Public Use
  Company Number: ES-PFIZER INC-2019506537

PATIENT
  Age: 40 Year
  Sex: Female

DRUGS (1)
  1. SOGILEN [Suspect]
     Active Substance: CABERGOLINE
     Dosage: 1.5 MG, UNK
     Dates: start: 201909

REACTIONS (1)
  - Neoplasm malignant [Unknown]
